FAERS Safety Report 9008171 (Version 2)
Quarter: 2013Q1

REPORT INFORMATION
  Report Type: Spontaneous
  Country: IT (occurrence: IT)
  Receive Date: 20130111
  Receipt Date: 20130124
  Transmission Date: 20140127
  Serious: Yes (Hospitalization)
  Sender: FDA-Public Use
  Company Number: IT-NOVOPROD-368122

PATIENT
  Age: 46 Year
  Sex: Female

DRUGS (5)
  1. LEVEMIR FLEXPEN [Suspect]
     Indication: TYPE 1 DIABETES MELLITUS
     Dosage: 15 U/DIE
     Route: 058
     Dates: start: 20090101
  2. NOVORAPID FLEXPEN [Suspect]
     Indication: TYPE 1 DIABETES MELLITUS
     Dosage: 30 U/DIE
     Route: 058
     Dates: start: 20090101
  3. CARDIOASPIRIN [Concomitant]
     Route: 048
  4. VALIUM                             /00017001/ [Concomitant]
     Dosage: 40 GTT, UNK
  5. FELISON [Concomitant]
     Route: 048

REACTIONS (2)
  - Bradyphrenia [Recovered/Resolved]
  - Hypoglycaemia [Recovered/Resolved]
